FAERS Safety Report 25450999 (Version 1)
Quarter: 2025Q2

REPORT INFORMATION
  Report Type: Spontaneous
  Country: CN (occurrence: CN)
  Receive Date: 20250618
  Receipt Date: 20250618
  Transmission Date: 20250716
  Serious: Yes (Hospitalization, Other)
  Sender: PFIZER
  Company Number: CN-PFIZER INC-PV202500070901

PATIENT
  Age: 77 Year
  Sex: Female
  Weight: 57 kg

DRUGS (3)
  1. IRINOTECAN HYDROCHLORIDE [Suspect]
     Active Substance: IRINOTECAN HYDROCHLORIDE
     Indication: Colon cancer
     Route: 041
     Dates: start: 20250603, end: 20250603
  2. VEMURAFENIB [Suspect]
     Active Substance: VEMURAFENIB
     Indication: Colon cancer
     Dosage: 720 MG, 2X/DAY
     Route: 048
     Dates: start: 20250512, end: 20250611
  3. ERBITUX [Suspect]
     Active Substance: CETUXIMAB
     Indication: Colon cancer
     Dosage: 700 MG, WEEKLY
     Route: 041
     Dates: start: 20250603, end: 20250604

REACTIONS (5)
  - Atrial fibrillation [Recovering/Resolving]
  - Malaise [Unknown]
  - Platelet count decreased [Unknown]
  - Off label use [Unknown]
  - Product use issue [Unknown]

NARRATIVE: CASE EVENT DATE: 20250101
